FAERS Safety Report 16797324 (Version 2)
Quarter: 2019Q4

REPORT INFORMATION
  Report Type: Report from Study
  Country: CA (occurrence: CA)
  Receive Date: 20190912
  Receipt Date: 20191017
  Transmission Date: 20200122
  Serious: Yes (Other)
  Sender: FDA-Public Use
  Company Number: CA-BEH-2019106706

PATIENT
  Age: 31 Year
  Sex: Male

DRUGS (9)
  1. DANAZOL. [Concomitant]
     Active Substance: DANAZOL
  2. BERINERT [Suspect]
     Active Substance: HUMAN C1-ESTERASE INHIBITOR
     Indication: PROPHYLAXIS
     Dosage: 3000 INTERNATIONAL UNIT, PRN
     Route: 065
  3. FIRAZYR [Concomitant]
     Active Substance: ICATIBANT ACETATE
  4. FRESH FROZEN PLASMA [Concomitant]
     Active Substance: HUMAN PLASMA
  5. BERINERT [Suspect]
     Active Substance: HUMAN C1-ESTERASE INHIBITOR
     Indication: HEREDITARY ANGIOEDEMA WITH C1 ESTERASE INHIBITOR DEFICIENCY
     Dosage: 7500 INTERNATIONAL UNIT, BIW
     Route: 058
  6. BERINERT [Suspect]
     Active Substance: HUMAN C1-ESTERASE INHIBITOR
     Indication: HEREDITARY ANGIOEDEMA WITH C1 ESTERASE INHIBITOR DEFICIENCY
     Dosage: 7500 INTERNATIONAL UNIT, BIW
     Route: 058
  7. BERINERT [Suspect]
     Active Substance: HUMAN C1-ESTERASE INHIBITOR
     Indication: PROPHYLAXIS
     Dosage: 3000 INTERNATIONAL UNIT, PRN
     Route: 065
  8. STANOZOLOL [Concomitant]
     Active Substance: STANOZOLOL
  9. CINRYZE [Concomitant]
     Active Substance: HUMAN C1-ESTERASE INHIBITOR

REACTIONS (12)
  - Ill-defined disorder [Not Recovered/Not Resolved]
  - Intentional product misuse [Unknown]
  - Treatment noncompliance [Unknown]
  - Malaise [Not Recovered/Not Resolved]
  - Product use in unapproved indication [Unknown]
  - Stress at work [Not Recovered/Not Resolved]
  - Therapy cessation [Unknown]
  - Hereditary angioedema [Recovered/Resolved]
  - Off label use [Unknown]
  - Intentional product use issue [Unknown]
  - No adverse event [Unknown]
  - Pharyngeal swelling [Recovered/Resolved]

NARRATIVE: CASE EVENT DATE: 20191005
